FAERS Safety Report 5053862-1 (Version None)
Quarter: 2006Q3

REPORT INFORMATION
  Report Type: 
  Country: None (occurrence: None)
  Receive Date: 20060712
  Receipt Date: 20060629
  Transmission Date: 20061208
  Serious: Yes (Other)
  Sender: FDA-Public Use
  Company Number: 2006078761

PATIENT
  Age: 61 Year
  Sex: Female

DRUGS (2)
  1. LYRICA [Suspect]
     Indication: NEURALGIA
     Dosage: 150 MG (75 MG, 2 IN  1 D),ORAL
     Route: 048
     Dates: start: 20060313
  2. TAMBOCOR [Concomitant]

REACTIONS (1)
  - TACHYCARDIA [None]
